FAERS Safety Report 14595623 (Version 1)
Quarter: 2018Q1

REPORT INFORMATION
  Report Type: Spontaneous
  Country: US (occurrence: US)
  Receive Date: 20180303
  Receipt Date: 20180303
  Transmission Date: 20180509
  Serious: No
  Sender: FDA-Public Use
  Company Number: US-B.I. PHARMACEUTICALS,INC./RIDGEFIELD-2018-BI-010319

PATIENT
  Age: 80 Year
  Sex: Male

DRUGS (4)
  1. OFEV [Suspect]
     Active Substance: NINTEDANIB
     Indication: IDIOPATHIC PULMONARY FIBROSIS
     Dosage: DRUG REDUCED
     Route: 048
     Dates: start: 201801, end: 201802
  2. OFEV [Suspect]
     Active Substance: NINTEDANIB
     Dosage: DOSE MAINTAINED
     Route: 048
     Dates: start: 20180222
  3. SIMVASTATIN. [Concomitant]
     Active Substance: SIMVASTATIN
     Indication: CARDIAC DISORDER
     Route: 048
  4. OFEV [Suspect]
     Active Substance: NINTEDANIB
     Dosage: DOSE INCREASED
     Route: 048
     Dates: start: 201802, end: 201802

REACTIONS (1)
  - Dyspnoea [Not Recovered/Not Resolved]

NARRATIVE: CASE EVENT DATE: 201802
